FAERS Safety Report 8345082-X (Version None)
Quarter: 2012Q1

REPORT INFORMATION
  Report Type: 
  Country: None (occurrence: None)
  Receive Date: 20120315
  Receipt Date: 20101216
  Transmission Date: 20120608
  Serious: No
  Sender: FDA-Public Use
  Company Number: PHHY2010US87030

PATIENT
  Age: 21 Year
  Sex: Male
  Weight: 81.6 kg

DRUGS (11)
  1. IMMUNOGLOBULIN HUMAN NORMAL (IMMUNOGLOBULIN HUMAN NORMAL) [Concomitant]
  2. MULTIVITAMINS (ASCORBIC ACID, ERGOCALCIFEROL, FOLIC ACID, NICOTINAMIDE [Concomitant]
  3. CYMBALTA [Concomitant]
  4. PREVACID [Concomitant]
  5. TOPROL-XL [Concomitant]
  6. MAXALT [Concomitant]
  7. GILENYA [Suspect]
     Dosage: 0.5 MG, QD, ORAL
     Route: 048
  8. KLONOPIN [Concomitant]
  9. ADDERALL (AMFETAMINE ASPARTATE, AMFETAMINE SULFATE, DEXAMFETAMINE SACC [Concomitant]
  10. ZANAFLEX [Concomitant]
  11. FIORICET [Concomitant]

REACTIONS (2)
  - CHILLS [None]
  - FATIGUE [None]
